FAERS Safety Report 4555330-X (Version None)
Quarter: 2004Q4

REPORT INFORMATION
  Report Type: 
  Country: None (occurrence: None)
  Receive Date: 20041217
  Receipt Date: 20041018
  Transmission Date: 20050328
  Serious: No
  Sender: FDA-Public Use
  Company Number: 2004-BP-10283BP

PATIENT
  Age: 73 Year
  Sex: Male

DRUGS (4)
  1. SPIRIVA [Suspect]
     Indication: CHRONIC OBSTRUCTIVE AIRWAYS DISEASE
     Dosage: 18 MCG (18 MCG, 1 IN 1 D), IH
     Route: 055
  2. VERAPAMIL [Concomitant]
  3. DIGITALIS (DIGITALIS PURPUREA) [Concomitant]
  4. COUMADIN [Concomitant]

REACTIONS (1)
  - DRUG INEFFECTIVE [None]
